FAERS Safety Report 5488507-X (Version None)
Quarter: 2007Q4

REPORT INFORMATION
  Report Type: 
  Country: None (occurrence: None)
  Receive Date: 20071017
  Receipt Date: 20071015
  Transmission Date: 20080405
  Serious: Yes (Hospitalization)
  Sender: FDA-Public Use
  Company Number: US-ASTRAZENECA-2007UW23942

PATIENT
  Age: 71 Year
  Sex: Female

DRUGS (1)
  1. SEROQUEL [Suspect]
     Indication: BIPOLAR I DISORDER
     Route: 048
     Dates: start: 20060701

REACTIONS (8)
  - ASTHENIA [None]
  - DIZZINESS [None]
  - INCREASED APPETITE [None]
  - MANIA [None]
  - PANIC ATTACK [None]
  - POLLAKIURIA [None]
  - THIRST [None]
  - WEIGHT INCREASED [None]
